FAERS Safety Report 4653143-1 (Version None)
Quarter: 2005Q2

REPORT INFORMATION
  Report Type: 
  Country: None (occurrence: None)
  Receive Date: 20050505
  Receipt Date: 20050421
  Transmission Date: 20051028
  Serious: Yes (Other)
  Sender: FDA-Public Use
  Company Number: FR-JNJFOC-20050301815

PATIENT
  Age: 40 Year
  Sex: Male

DRUGS (4)
  1. REMICADE [Suspect]
     Dosage: 8TH INFUSION
     Route: 042
  2. REMICADE [Suspect]
     Indication: ANKYLOSING SPONDYLITIS
     Dosage: 7 INFUSIONS - DATES AND DOSE UNKNOWN.
     Route: 042
  3. SULFASALAZINE [Concomitant]
  4. LAMISIL [Concomitant]

REACTIONS (2)
  - GAMMOPATHY [None]
  - PLASMACYTOSIS [None]
